FAERS Safety Report 9485864 (Version 3)
Quarter: 2014Q2

REPORT INFORMATION
  Report Type: Spontaneous
  Country: GB (occurrence: GB)
  Receive Date: 20130829
  Receipt Date: 20140418
  Transmission Date: 20141212
  Serious: Yes (Hospitalization)
  Sender: FDA-Public Use
  Company Number: PHFR2013GB004909

PATIENT
  Sex: Female

DRUGS (6)
  1. CLOZARIL [Suspect]
     Indication: SCHIZOPHRENIA
     Dosage: UNK
     Route: 048
     Dates: start: 20060531, end: 20130813
  2. CLOZARIL [Suspect]
     Indication: SCHIZOAFFECTIVE DISORDER
     Dosage: 350 MG, DAILY
     Route: 048
  3. VALPROATE SEMISODIUM [Concomitant]
     Indication: SCHIZOAFFECTIVE DISORDER
     Dosage: 500 MG, DAILY
     Route: 048
  4. VALPROATE SEMISODIUM [Concomitant]
     Dosage: 20 MG, DAILY
  5. PREGABALIN [Concomitant]
     Dosage: 150 MG, BID
     Route: 048
  6. LEVOTHYROXIN [Concomitant]
     Dosage: 50 UG, DAILY
     Route: 048

REACTIONS (2)
  - Urinary tract infection [Recovered/Resolved]
  - Glomerular filtration rate decreased [Unknown]
